APPROVED DRUG PRODUCT: KEPPRA XR
Active Ingredient: LEVETIRACETAM
Strength: 750MG
Dosage Form/Route: TABLET, EXTENDED RELEASE;ORAL
Application: N022285 | Product #002 | TE Code: AB
Applicant: UCB INC
Approved: Feb 12, 2009 | RLD: Yes | RS: Yes | Type: RX

PATENTS:
Patent 7858122 | Expires: Sep 17, 2028